FAERS Safety Report 14767731 (Version 1)
Quarter: 2018Q2

REPORT INFORMATION
  Report Type: Spontaneous
  Country: US (occurrence: US)
  Receive Date: 20180417
  Receipt Date: 20180417
  Transmission Date: 20180711
  Serious: Yes (Hospitalization)
  Sender: FDA-Public Use
  Company Number: US-BIOGEN-2018BI00542175

PATIENT
  Age: 59 Year
  Sex: Female

DRUGS (2)
  1. ZINBRYTA [Suspect]
     Active Substance: DACLIZUMAB
     Indication: MULTIPLE SCLEROSIS
     Route: 058
     Dates: start: 20170323
  2. ZINBRYTA [Suspect]
     Active Substance: DACLIZUMAB
     Route: 058
     Dates: start: 201704

REACTIONS (14)
  - Cystitis [Unknown]
  - Skin lesion [Unknown]
  - Rash [Unknown]
  - Depression [Unknown]
  - Vomiting [Unknown]
  - Tongue ulceration [Unknown]
  - Liver disorder [Unknown]
  - Dry skin [Unknown]
  - Chapped lips [Unknown]
  - Influenza [Unknown]
  - Urinary tract infection [Unknown]
  - Pain of skin [Unknown]
  - Diarrhoea [Unknown]
  - Skin exfoliation [Unknown]

NARRATIVE: CASE EVENT DATE: 20180220
